FAERS Safety Report 5137306-7 (Version None)
Quarter: 2006Q4

REPORT INFORMATION
  Report Type: 
  Country: None (occurrence: None)
  Receive Date: 20061030
  Receipt Date: 20051007
  Transmission Date: 20070319
  Serious: No
  Sender: FDA-Public Use
  Company Number: US-GLAXOSMITHKLINE-A0577519A

PATIENT
  Age: 63 Year
  Sex: Female

DRUGS (5)
  1. ADVAIR HFA [Suspect]
     Indication: ASTHMA
     Dosage: 250MCG TWICE PER DAY
     Route: 055
     Dates: start: 20050908
  2. RELAFEN [Concomitant]
  3. ULTRACET [Concomitant]
  4. HYZAAR [Concomitant]
  5. NEURONTIN [Concomitant]

REACTIONS (2)
  - DYSPNOEA [None]
  - WHEEZING [None]
